FAERS Safety Report 8112308 (Version 2)
Quarter: 2012Q4

REPORT INFORMATION
  Report Type: 
  Country: US (occurrence: US)
  Receive Date: 20110830
  Receipt Date: 20120920
  Transmission Date: 20130627
  Serious: Yes (Hospitalization)
  Sender: FDA-Public Use
  Company Number: US-US-EMD SERONO, INC.-7078095

PATIENT
  Age: 59 None
  Sex: Female

DRUGS (3)
  1. REBIF [Suspect]
     Indication: MULTIPLE SCLEROSIS
     Route: 058
     Dates: start: 2007, end: 2008
  2. REBIF [Suspect]
     Route: 058
     Dates: start: 20100830, end: 201106
  3. REBIF [Suspect]
     Route: 058
     Dates: start: 201107

REACTIONS (2)
  - Gastrointestinal bacterial infection [Recovered/Resolved]
  - Influenza like illness [Unknown]
